FAERS Safety Report 4726170-3 (Version None)
Quarter: 2005Q3

REPORT INFORMATION
  Report Type: 
  Country: None (occurrence: None)
  Receive Date: 20050725
  Receipt Date: 20050711
  Transmission Date: 20060218
  Serious: Yes (Other)
  Sender: FDA-Public Use
  Company Number: DE-2005-010132

PATIENT
  Age: 48 Year
  Sex: Male
  Weight: 92 kg

DRUGS (10)
  1. MAGNEVIST [Suspect]
     Indication: NUCLEAR MAGNETIC RESONANCE IMAGING
     Dosage: 15 ML, 1  DOSE, INTRAVENOUS
     Route: 042
     Dates: start: 20050315, end: 20050315
  2. ERYTHROPOIETIN HUMAN [Concomitant]
  3. BONDIOL (ALFACALCIDOL) [Concomitant]
  4. CALCIUM ACETATE [Concomitant]
  5. ALLOPURINOL [Concomitant]
  6. DYNACIL (FOSINOPRIL SODIUM) [Concomitant]
  7. METOPROLOL SUCCINATE [Concomitant]
  8. THYRONAJOD (POTASSIUM IODIDE, LEVOTHYROXINE SODIUM) [Concomitant]
  9. OMEPRAZOLE [Concomitant]
  10. IBUPROFEN [Concomitant]

REACTIONS (9)
  - C-REACTIVE PROTEIN INCREASED [None]
  - CHILLS [None]
  - COUGH [None]
  - DYSPNOEA [None]
  - FEELING HOT [None]
  - INFUSION RELATED REACTION [None]
  - LEUKOCYTOSIS [None]
  - LUNG DISORDER [None]
  - PYREXIA [None]
